FAERS Safety Report 4333751-8 (Version None)
Quarter: 2004Q2

REPORT INFORMATION
  Report Type: 
  Country: None (occurrence: None)
  Receive Date: 20040406
  Receipt Date: 20040406
  Transmission Date: 20050107
  Serious: Yes (Other)
  Sender: FDA-Public Use
  Company Number: None

PATIENT
  Sex: Male
  Weight: 89.8122 kg

DRUGS (1)
  1. CIALIS [Suspect]
     Dosage: 20 MG ONCE AURICULAR
     Route: 001

REACTIONS (2)
  - HEADACHE [None]
  - MYALGIA [None]
